FAERS Safety Report 7419669-2 (Version None)
Quarter: 2011Q2

REPORT INFORMATION
  Report Type: 
  Country: None (occurrence: None)
  Receive Date: 20110418
  Receipt Date: 20110406
  Transmission Date: 20111010
  Serious: Yes (Hospitalization, Other)
  Sender: FDA-Public Use
  Company Number: US-JNJFOC-20110403550

PATIENT
  Sex: Male
  Weight: 95.26 kg

DRUGS (1)
  1. DURAGESIC [Suspect]
     Indication: INTERVERTEBRAL DISC DEGENERATION
     Route: 062

REACTIONS (6)
  - RENAL CYST [None]
  - ILL-DEFINED DISORDER [None]
  - WITHDRAWAL SYNDROME [None]
  - DRUG DOSE OMISSION [None]
  - DEPRESSION [None]
  - HEART RATE DECREASED [None]
